FAERS Safety Report 8193173-9 (Version None)
Quarter: 2012Q1

REPORT INFORMATION
  Report Type: 
  Country: None (occurrence: None)
  Receive Date: 20120223
  Receipt Date: 20110422
  Transmission Date: 20120608
  Serious: Yes (Disabling)
  Sender: FDA-Public Use
  Company Number: WAES 1104USA03313

PATIENT
  Age: 77 Year
  Sex: Male
  Weight: 68.9467 kg

DRUGS (3)
  1. TYLENOL [Concomitant]
  2. ZOCOR [Suspect]
     Indication: BLOOD CHOLESTEROL DECREASED
     Dosage: 10 MG/DAILY/PO ; 0.5 TAB/DAILY/PO(20 MG)
     Route: 048
     Dates: end: 20110416
  3. ZOCOR [Suspect]
     Indication: BLOOD CHOLESTEROL DECREASED
     Dosage: 10 MG/DAILY/PO ; 0.5 TAB/DAILY/PO(20 MG)
     Route: 048
     Dates: end: 20110416

REACTIONS (3)
  - BLOOD CREATINE PHOSPHOKINASE INCREASED [None]
  - MYALGIA [None]
  - WRONG TECHNIQUE IN DRUG USAGE PROCESS [None]
